FAERS Safety Report 6455952-5 (Version None)
Quarter: 2009Q4

REPORT INFORMATION
  Report Type: 
  Country: None (occurrence: None)
  Receive Date: 20091119
  Receipt Date: 20091106
  Transmission Date: 20100525
  Serious: Yes (Death)
  Sender: FDA-Public Use
  Company Number: 2009AL007231

PATIENT
  Age: 70 Year
  Sex: Female

DRUGS (9)
  1. EPIRUBICIN HYDROCHLORIDE INJECTION, 2MG/ML PACKAGED IN 200MG/100ML SIN [Suspect]
     Indication: BREAST CANCER FEMALE
     Dosage: 108 MG; IV
     Route: 042
     Dates: start: 20090901, end: 20090901
  2. FLUOROURACIL [Concomitant]
  3. ENBREL [Concomitant]
  4. CYCLOPHOSPHAMIDE [Concomitant]
  5. ACTRAPID [Concomitant]
  6. ARTROX [Concomitant]
  7. ACETAMINOPHEN [Concomitant]
  8. HALDOL [Concomitant]
  9. POSTAFEN [Concomitant]

REACTIONS (6)
  - MULTI-ORGAN FAILURE [None]
  - NEUTROPENIC SEPSIS [None]
  - PANCYTOPENIA [None]
  - PSEUDOMONAL SEPSIS [None]
  - RESPIRATORY FAILURE [None]
  - SEPTIC SHOCK [None]
